FAERS Safety Report 6354478-7 (Version None)
Quarter: 2009Q3

REPORT INFORMATION
  Report Type: 
  Country: None (occurrence: None)
  Receive Date: 20090914
  Receipt Date: 20070917
  Transmission Date: 20100115
  Serious: Yes (Other)
  Sender: FDA-Public Use
  Company Number: US-ASTRAZENECA-2006UW21432

PATIENT
  Age: 27 Year
  Sex: Female
  Weight: 126.6 kg

DRUGS (17)
  1. SEROQUEL [Suspect]
     Indication: DEPRESSION
     Route: 048
     Dates: start: 19990101, end: 20070101
  2. SEROQUEL [Suspect]
     Indication: SLEEP DISORDER
     Route: 048
     Dates: start: 19990101, end: 20070101
  3. SEROQUEL [Suspect]
     Indication: NIGHTMARE
     Route: 048
     Dates: start: 19990101, end: 20070101
  4. SEROQUEL [Suspect]
     Route: 048
     Dates: start: 20010816, end: 20021121
  5. SEROQUEL [Suspect]
     Route: 048
     Dates: start: 20010816, end: 20021121
  6. SEROQUEL [Suspect]
     Route: 048
     Dates: start: 20010816, end: 20021121
  7. SEROQUEL [Suspect]
     Dosage: 300-600 MG
     Route: 048
     Dates: start: 20030710
  8. SEROQUEL [Suspect]
     Dosage: 300-600 MG
     Route: 048
     Dates: start: 20030710
  9. SEROQUEL [Suspect]
     Dosage: 300-600 MG
     Route: 048
     Dates: start: 20030710
  10. BUSPAR [Concomitant]
     Dosage: 30-45 MG
     Dates: start: 20000921
  11. ZOLOFT [Concomitant]
     Indication: DEPRESSION
     Dates: start: 19950101, end: 20000316
  12. PAXIL [Concomitant]
     Dates: start: 19990909
  13. REMERON [Concomitant]
     Dosage: 30-45 MG AT BEDTIME
     Dates: start: 19990909, end: 20010621
  14. TRAZODONE [Concomitant]
     Dates: start: 19950101
  15. VISTARIL [Concomitant]
     Dates: start: 20000316, end: 20000621
  16. LEXAPRO [Concomitant]
     Dates: start: 20021121
  17. PROZAC [Concomitant]
     Dosage: 20-60 MG
     Dates: start: 19990101

REACTIONS (1)
  - PANCREATITIS [None]
